FAERS Safety Report 12889342 (Version 1)
Quarter: 2016Q4

REPORT INFORMATION
  Report Type: Report from Study
  Country: IE (occurrence: IE)
  Receive Date: 20161027
  Receipt Date: 20161027
  Transmission Date: 20170207
  Serious: Yes (Death, Other)
  Sender: FDA-Public Use
  Company Number: IE-AMGEN-IRLSL2016148144

PATIENT
  Age: 70 Year
  Sex: Female

DRUGS (13)
  1. FUROSEMIDE. [Concomitant]
     Active Substance: FUROSEMIDE
     Dosage: 40 MG, QD
     Route: 050
  2. ARANESP [Suspect]
     Active Substance: DARBEPOETIN ALFA
     Indication: DIABETIC NEPHROPATHY
     Dosage: 70 MG, QWK
     Route: 058
     Dates: start: 20160811
  3. ATORVASTATIN [Concomitant]
     Active Substance: ATORVASTATIN
     Dosage: 40 MG, QD
     Route: 050
  4. ESCIPREX [Concomitant]
     Dosage: 5 MG, QD
     Route: 050
  5. SENOKOT [Concomitant]
     Active Substance: SENNOSIDES
     Dosage: 7.5 MG, QD
     Route: 050
  6. BISOP [Concomitant]
     Dosage: 2.5 MG, QD
     Route: 050
  7. ASPIRIN. [Concomitant]
     Active Substance: ASPIRIN
     Dosage: 75 MG, QD
     Route: 050
  8. RANITIC [Concomitant]
     Active Substance: RANITIDINE HYDROCHLORIDE
     Dosage: 150 MG, QD
     Route: 050
  9. METOLAZONE. [Concomitant]
     Active Substance: METOLAZONE
     Dosage: 2.5 MG, QD
     Route: 050
  10. NOVOMIX [Concomitant]
     Active Substance: INSULIN ASPART
     Dosage: 30 MG, BID
     Route: 050
  11. DOXANE [Concomitant]
     Dosage: 4 MG, QD
     Route: 050
  12. AMLODE [Concomitant]
     Active Substance: AMLODIPINE BESYLATE
     Dosage: 10 MG, QD
     Route: 050
  13. DESUNIN [Concomitant]
     Active Substance: CHOLECALCIFEROL
     Dosage: 800 IU/ML, UNK
     Route: 050

REACTIONS (2)
  - Death [Fatal]
  - Off label use [Unknown]

NARRATIVE: CASE EVENT DATE: 201610
